FAERS Safety Report 10246244 (Version 1)
Quarter: 2014Q2

REPORT INFORMATION
  Report Type: Spontaneous
  Country: US (occurrence: None)
  Receive Date: 20140617
  Receipt Date: 20140617
  Transmission Date: 20141212
  Serious: Yes (Other)
  Sender: FDA-Public Use
  Company Number: None

PATIENT
  Age: 50 Year
  Sex: Male
  Weight: 90.72 kg

DRUGS (6)
  1. TRANSDERM-SCOP [Suspect]
     Indication: MOTION SICKNESS
     Dosage: ONE PATCH, CHANGE Q 3 DAYS, APPLIED TO SURFACE, USUALLY THE SKIN
     Route: 061
     Dates: start: 20140608, end: 20140615
  2. XANAX [Concomitant]
  3. OXYCODONE [Concomitant]
  4. CYCLOBENZOPRINE [Concomitant]
  5. SCOPALAMINE [Concomitant]
  6. MECLAZINE [Concomitant]

REACTIONS (2)
  - Hyperhidrosis [None]
  - Nausea [None]
